FAERS Safety Report 12333887 (Version 1)
Quarter: 2016Q2

REPORT INFORMATION
  Report Type: Spontaneous
  Country: US (occurrence: US)
  Receive Date: 20160504
  Receipt Date: 20160504
  Transmission Date: 20160815
  Serious: No
  Sender: FDA-Public Use
  Company Number: US-ROCHE-1692942

PATIENT
  Sex: Male
  Weight: 63.56 kg

DRUGS (1)
  1. ESBRIET [Suspect]
     Active Substance: PIRFENIDONE
     Indication: IDIOPATHIC PULMONARY FIBROSIS
     Dosage: TOTAL-2403MG DAILY; 3 CAPS PO TID
     Route: 048
     Dates: start: 20150312

REACTIONS (7)
  - Dysgeusia [Unknown]
  - Nausea [Unknown]
  - Hot flush [Unknown]
  - Fatigue [Unknown]
  - Weight decreased [Unknown]
  - Back pain [Unknown]
  - Decreased appetite [Unknown]
